FAERS Safety Report 21668500 (Version 1)
Quarter: 2022Q4

REPORT INFORMATION
  Report Type: Spontaneous
  Country: US (occurrence: US)
  Receive Date: 20221201
  Receipt Date: 20221201
  Transmission Date: 20230113
  Serious: No
  Sender: FDA-Public Use
  Company Number: US-SA-SAC20221129001206

PATIENT
  Age: 50 Year
  Sex: Female
  Weight: 60 kg

DRUGS (7)
  1. DUPIXENT [Suspect]
     Active Substance: DUPILUMAB
     Indication: Illness
     Dosage: 300 MG, QOW
     Route: 058
  2. ADVIL [Concomitant]
     Active Substance: IBUPROFEN
  3. MELOXICAM [Concomitant]
     Active Substance: MELOXICAM
  4. METHOCARBAMOL [Concomitant]
     Active Substance: METHOCARBAMOL
  5. TOPAMAX [Concomitant]
     Active Substance: TOPIRAMATE
  6. VITAMIN D3 [Concomitant]
     Active Substance: CHOLECALCIFEROL
  7. ALLERGY RELIEF [CETIRIZINE HYDROCHLORIDE] [Concomitant]

REACTIONS (1)
  - COVID-19 [Not Recovered/Not Resolved]

NARRATIVE: CASE EVENT DATE: 20221122
